FAERS Safety Report 5361394-6 (Version None)
Quarter: 2007Q2

REPORT INFORMATION
  Report Type: 
  Country: None (occurrence: None)
  Receive Date: 20070530
  Receipt Date: 20070325
  Transmission Date: 20071010
  Serious: No
  Sender: FDA-Public Use
  Company Number: 2007PV032337

PATIENT
  Age: 55 Year
  Sex: Female
  Weight: 76.2043 kg

DRUGS (6)
  1. BYETTA [Suspect]
     Indication: DIABETES MELLITUS NON-INSULIN-DEPENDENT
     Dosage: 10 MCG; BID; SC, 5 MCG; BID; SC
     Route: 058
     Dates: start: 20050801, end: 20051001
  2. BYETTA [Suspect]
     Indication: DIABETES MELLITUS NON-INSULIN-DEPENDENT
     Dosage: 10 MCG; BID; SC, 5 MCG; BID; SC
     Route: 058
     Dates: start: 20051001
  3. OXYBUTYNIN CHLORIDE [Suspect]
     Indication: INCONTINENCE
     Dosage: 10 MCG; BID; PO, 5 MCG; BID; PO
     Route: 048
  4. METFORMIN HCL [Concomitant]
  5. GLUCOTROL XL [Concomitant]
  6. ACTOS [Concomitant]

REACTIONS (3)
  - INCONTINENCE [None]
  - URINARY TRACT INFECTION [None]
  - WEIGHT DECREASED [None]
